FAERS Safety Report 4851722-X (Version None)
Quarter: 2005Q4

REPORT INFORMATION
  Report Type: 
  Country: None (occurrence: None)
  Receive Date: 20051209
  Receipt Date: 20051209
  Transmission Date: 20060501
  Serious: No
  Sender: FDA-Public Use
  Company Number: None

PATIENT
  Age: 56 Year
  Sex: Male
  Weight: 113.8529 kg

DRUGS (2)
  1. GATIFLOXACIN [Suspect]
     Indication: BRONCHITIS
     Dosage: PO QD 400MG
     Route: 048
     Dates: start: 20050716, end: 20050718
  2. GLIPIZIDE [Concomitant]

REACTIONS (4)
  - APHASIA [None]
  - BLOOD GLUCOSE DECREASED [None]
  - BLOOD GLUCOSE FLUCTUATION [None]
  - LOSS OF CONSCIOUSNESS [None]
